FAERS Safety Report 15590526 (Version 1)
Quarter: 2018Q4

REPORT INFORMATION
  Report Type: Spontaneous
  Country: JP (occurrence: JP)
  Receive Date: 20181106
  Receipt Date: 20181106
  Transmission Date: 20190205
  Serious: Yes (Hospitalization)
  Sender: FDA-Public Use
  Company Number: JP-BAYER-2018-200596

PATIENT
  Age: 58 Year
  Sex: Male

DRUGS (1)
  1. XOFIGO [Suspect]
     Active Substance: RADIUM RA-223 DICHLORIDE
     Dosage: DAILY DOSE 55 KBQ
     Route: 042
     Dates: start: 20180629, end: 20180918

REACTIONS (1)
  - Disease progression [None]

NARRATIVE: CASE EVENT DATE: 201809
